FAERS Safety Report 11149789 (Version 2)
Quarter: 2015Q3

REPORT INFORMATION
  Report Type: Spontaneous
  Country: US (occurrence: US)
  Receive Date: 20150529
  Receipt Date: 20150713
  Transmission Date: 20151125
  Serious: Yes (Other)
  Sender: FDA-Public Use
  Company Number: US-CELGENEUS-USA-2015054115

PATIENT
  Sex: Female
  Weight: 61.29 kg

DRUGS (2)
  1. REVLIMID [Suspect]
     Active Substance: LENALIDOMIDE
     Indication: MYELODYSPLASTIC SYNDROME
     Route: 048
     Dates: start: 201404
  2. REVLIMID [Suspect]
     Active Substance: LENALIDOMIDE
     Route: 048
     Dates: start: 20150423

REACTIONS (4)
  - Thrombocytopenia [Unknown]
  - Skin discolouration [Recovering/Resolving]
  - Anaemia [Recovering/Resolving]
  - Neutropenia [Unknown]
